FAERS Safety Report 5533287-2 (Version None)
Quarter: 2007Q4

REPORT INFORMATION
  Report Type: 
  Country: None (occurrence: None)
  Receive Date: 20071130
  Receipt Date: 20071130
  Transmission Date: 20080405
  Serious: Yes (Other)
  Sender: FDA-Public Use
  Company Number: None

PATIENT
  Age: 76 Year
  Sex: Female
  Weight: 59.8748 kg

DRUGS (1)
  1. RANITIDINE [Suspect]
     Indication: ULCER
     Dosage: 1 CAPSULE 300 MG  2X   PO
     Route: 048
     Dates: start: 20070907, end: 20071001

REACTIONS (4)
  - DIZZINESS [None]
  - FALL [None]
  - NAUSEA [None]
  - VOMITING [None]
